FAERS Safety Report 17876579 (Version 1)
Quarter: 2020Q2

REPORT INFORMATION
  Report Type: Spontaneous
  Country: DE (occurrence: DE)
  Receive Date: 20200609
  Receipt Date: 20200609
  Transmission Date: 20200714
  Serious: Yes (Other)
  Sender: FDA-Public Use
  Company Number: DE-BRACCO-2020DE02216

PATIENT
  Age: 54 Year
  Sex: Male

DRUGS (15)
  1. RINGER^S SOLUTION                  /03112001/ [Concomitant]
     Active Substance: CALCIUM CHLORIDE\POTASSIUM CHLORIDE
     Dosage: 500 ML, TOTAL
     Route: 042
     Dates: start: 20200505
  2. MIDAZOLAM. [Concomitant]
     Active Substance: MIDAZOLAM
     Dosage: 3 MG, TOTAL (2MG, 1 MG)
     Route: 042
     Dates: start: 20200505
  3. LOSARTAN. [Concomitant]
     Active Substance: LOSARTAN
     Dosage: 1 DF, QD, (50: 1-0-0)
  4. SOLUTRAST 300 [Suspect]
     Active Substance: IOPAMIDOL
     Indication: PERCUTANEOUS CORONARY INTERVENTION
     Dosage: 160 ML, SINGLE
     Route: 013
     Dates: start: 20200505, end: 20200505
  5. NOVALGIN (METAMIZOLE SODIUM) [Concomitant]
     Active Substance: METAMIZOLE SODIUM
     Dosage: UNK
     Dates: start: 202005
  6. HCT [Concomitant]
     Active Substance: HYDROCHLOROTHIAZIDE
     Dosage: 12.5 MG, QD, 1-0-0
  7. NITRO                              /00003201/ [Concomitant]
     Active Substance: NITROGLYCERIN
     Indication: PROPHYLAXIS
     Dosage: 0.4 MG, TOTAL
     Route: 016
     Dates: start: 20200505
  8. MORPHIN                            /00036303/ [Concomitant]
     Active Substance: MORPHINE
     Dosage: 5 MG, TOTAL
     Route: 042
     Dates: start: 20200505
  9. BUSCOPAN [Concomitant]
     Active Substance: BUTYLSCOPOLAMINE BROMIDE
     Dosage: UNK
     Dates: start: 202005
  10. HEPARIN [Concomitant]
     Active Substance: HEPARIN SODIUM
     Dosage: 5000 IU
     Route: 042
  11. L THYROXIN [Concomitant]
     Active Substance: LEVOTHYROXINE SODIUM
     Dosage: 100 ?G, QD (1-0-0)
  12. EFIENT [Concomitant]
     Active Substance: PRASUGREL HYDROCHLORIDE
     Indication: ANTICOAGULANT THERAPY
     Dosage: 60 MG, LOADING IN THE HEART CATHETER
     Dates: start: 20200505
  13. NITRO                              /00003201/ [Concomitant]
     Active Substance: NITROGLYCERIN
     Indication: PROPHYLAXIS
     Dosage: 0.6 MG, TOTAL
     Route: 013
     Dates: start: 20200505
  14. EFIENT [Concomitant]
     Active Substance: PRASUGREL HYDROCHLORIDE
     Indication: ANTICOAGULANT THERAPY
     Dosage: 60 MG
     Route: 048
     Dates: start: 20200505
  15. PANTOZOL [Concomitant]
     Active Substance: PANTOPRAZOLE SODIUM
     Dates: start: 202005

REACTIONS (2)
  - Arterial stenosis [Recovered/Resolved]
  - Embolism [Unknown]

NARRATIVE: CASE EVENT DATE: 20200505
